FAERS Safety Report 19874566 (Version 2)
Quarter: 2022Q1

REPORT INFORMATION
  Report Type: Spontaneous
  Country: CA (occurrence: CA)
  Receive Date: 20210922
  Receipt Date: 20220120
  Transmission Date: 20220423
  Serious: Yes (Hospitalization)
  Sender: FDA-Public Use
  Company Number: CA-SA-SAC20210921001506

PATIENT
  Age: 86 Year
  Sex: Male
  Weight: 68 kg

DRUGS (4)
  1. LOVENOX [Suspect]
     Active Substance: ENOXAPARIN SODIUM
     Indication: Thrombosis prophylaxis
     Dosage: 40 MG, QD
     Route: 058
     Dates: start: 20200828, end: 20200829
  2. ARIXTRA [Suspect]
     Active Substance: FONDAPARINUX SODIUM
     Indication: Thrombosis prophylaxis
     Dosage: 3 MG, QD
     Route: 058
  3. ARIXTRA [Suspect]
     Active Substance: FONDAPARINUX SODIUM
     Dosage: 5MG, QD
     Route: 058
     Dates: start: 20200824, end: 20200828
  4. ASPIRIN [Concomitant]
     Active Substance: ASPIRIN
     Dosage: 80MG, QD
     Route: 065

REACTIONS (5)
  - Suprapubic pain [Recovering/Resolving]
  - Swelling [Recovering/Resolving]
  - Haematoma [Recovering/Resolving]
  - Haemoglobin decreased [Recovering/Resolving]
  - Transfusion [Unknown]
